FAERS Safety Report 7700619-6 (Version None)
Quarter: 2011Q3

REPORT INFORMATION
  Report Type: 
  Country: None (occurrence: None)
  Receive Date: 20110822
  Receipt Date: 20110822
  Transmission Date: 20111222
  Serious: Yes (Hospitalization)
  Sender: FDA-Public Use
  Company Number: None

PATIENT
  Age: 33 Year
  Sex: Female
  Weight: 70.306 kg

DRUGS (1)
  1. TREXIMET [Suspect]
     Indication: MIGRAINE WITH AURA
     Dosage: ONE TAB
     Route: 048
     Dates: start: 20110810, end: 20110810

REACTIONS (1)
  - COLITIS ISCHAEMIC [None]
